FAERS Safety Report 21471394 (Version 1)
Quarter: 2022Q4

REPORT INFORMATION
  Report Type: Spontaneous
  Country: US (occurrence: None)
  Receive Date: 20221017
  Receipt Date: 20221017
  Transmission Date: 20230113
  Serious: No
  Sender: FDA-Public Use
  Company Number: None

PATIENT
  Age: 72 Year
  Sex: Male
  Weight: 85.5 kg

DRUGS (1)
  1. LENVIMA [Suspect]
     Active Substance: LENVATINIB
     Indication: Hepatocellular carcinoma
     Dosage: FREQUENCY : DAILY;?
     Route: 048
     Dates: start: 20220615, end: 20221003

REACTIONS (11)
  - Stomatitis [None]
  - Glossodynia [None]
  - Ageusia [None]
  - Asthenia [None]
  - Asthenia [None]
  - Abdominal pain upper [None]
  - Vision blurred [None]
  - Decreased appetite [None]
  - Insomnia [None]
  - Abdominal distension [None]
  - Hypoaesthesia oral [None]
